FAERS Safety Report 9626239 (Version 1)
Quarter: 2013Q4

REPORT INFORMATION
  Report Type: Spontaneous
  Country: US (occurrence: None)
  Receive Date: 20131015
  Receipt Date: 20131015
  Transmission Date: 20140711
  Serious: Yes (Other)
  Sender: FDA-Public Use
  Company Number: None

PATIENT
  Age: 38 Year
  Sex: Female
  Weight: 58.97 kg

DRUGS (1)
  1. AVELOX [Suspect]
     Indication: SINUSITIS
     Dates: start: 20130914, end: 20130914

REACTIONS (11)
  - Paraesthesia [None]
  - Heart rate irregular [None]
  - Hypopnoea [None]
  - Pain in extremity [None]
  - Balance disorder [None]
  - Muscular weakness [None]
  - Neuropathy peripheral [None]
  - Pain in extremity [None]
  - Arthralgia [None]
  - Formication [None]
  - Tendon disorder [None]
